FAERS Safety Report 4845870-8 (Version None)
Quarter: 2005Q4

REPORT INFORMATION
  Report Type: 
  Country: None (occurrence: None)
  Receive Date: 20051116
  Receipt Date: 20050808
  Transmission Date: 20060501
  Serious: Yes (Other)
  Sender: FDA-Public Use
  Company Number: 079-05

PATIENT
  Age: 66 Year
  Sex: Female

DRUGS (7)
  1. RIFAMPIN [Suspect]
     Indication: TUBERCULOSIS
     Dosage: 600 MG PO QD
     Route: 048
     Dates: start: 20040801, end: 20050501
  2. ETHAMBUTOL HCL [Suspect]
     Indication: TUBERCULOSIS
     Dosage: 400 MG
     Dates: start: 20040801, end: 20050501
  3. PYRAZINAMIDE [Suspect]
     Indication: TUBERCULOSIS
     Dosage: 1500 MG DAILY
     Dates: start: 20040801, end: 20050501
  4. PREDNISONE [Suspect]
     Indication: RHEUMATOID ARTHRITIS
     Dosage: 10 MG DAILY
     Dates: start: 20050201
  5. METHOTREXATE [Suspect]
     Indication: RHEUMATOID ARTHRITIS
     Dosage: 10MG WEEKLY
     Dates: start: 20050201
  6. HUMIRA (ADALIMUMAB) [Concomitant]
  7. ENBREL [Concomitant]

REACTIONS (3)
  - BLINDNESS [None]
  - CATARACT [None]
  - NEOPLASM [None]
